FAERS Safety Report 13884176 (Version 2)
Quarter: 2017Q3

REPORT INFORMATION
  Report Type: Spontaneous
  Country: IT (occurrence: IT)
  Receive Date: 20170821
  Receipt Date: 20170927
  Transmission Date: 20171127
  Serious: Yes (Hospitalization)
  Sender: FDA-Public Use
  Company Number: IT-MERCK KGAA-2024820

PATIENT
  Sex: Female

DRUGS (9)
  1. NOVOTHYROX [Suspect]
     Active Substance: LEVOTHYROXINE SODIUM
     Indication: HYPOTHYROIDISM
     Route: 048
     Dates: start: 20170513, end: 20170618
  2. STILNOX [Concomitant]
     Active Substance: ZOLPIDEM TARTRATE
  3. MYCOSTATIN [Concomitant]
     Active Substance: NYSTATIN
  4. ESIDREX [Suspect]
     Active Substance: HYDROCHLOROTHIAZIDE
     Route: 048
     Dates: start: 20170617, end: 20170617
  5. PANTORC [Concomitant]
     Active Substance: PANTOPRAZOLE SODIUM
  6. DELTACORTENE [Concomitant]
     Active Substance: PREDNISONE
  7. TRIATEC [Concomitant]
     Active Substance: RAMIPRIL
  8. ALDACTONE [Concomitant]
     Active Substance: SPIRONOLACTONE
  9. ACIDO ACETILSALICILICO SANDOZ [Concomitant]
     Active Substance: ASPIRIN

REACTIONS (6)
  - Anxiety [Recovered/Resolved]
  - Chest pain [Recovered/Resolved]
  - Weight decreased [Recovered/Resolved]
  - Hypokalaemia [Recovered/Resolved]
  - Sinus tachycardia [Recovered/Resolved]
  - Paraesthesia [Recovered/Resolved]

NARRATIVE: CASE EVENT DATE: 20170617
